FAERS Safety Report 5341502-3 (Version None)
Quarter: 2007Q2

REPORT INFORMATION
  Report Type: 
  Country: None (occurrence: None)
  Receive Date: 20070601
  Receipt Date: 20070523
  Transmission Date: 20071010
  Serious: Yes (Hospitalization)
  Sender: FDA-Public Use
  Company Number: PHEH2007US07904

PATIENT
  Age: 85 Year
  Sex: Female
  Weight: 175 kg

DRUGS (1)
  1. TEKTURNA [Suspect]
     Indication: HYPERTENSION
     Dosage: 150 MG, QD
     Dates: start: 20070423, end: 20070520

REACTIONS (1)
  - CEREBROVASCULAR ACCIDENT [None]
